FAERS Safety Report 16287687 (Version 5)
Quarter: 2022Q4

REPORT INFORMATION
  Report Type: Spontaneous
  Country: US (occurrence: None)
  Receive Date: 20190508
  Receipt Date: 20221102
  Transmission Date: 20230112
  Serious: Yes (Death, Hospitalization, Disabling, Other)
  Sender: FDA-Public Use
  Company Number: 2019SE62696

PATIENT
  Age: 37 Year
  Sex: Male
  Weight: 86.2 kg

DRUGS (68)
  1. NEXIUM [Suspect]
     Active Substance: ESOMEPRAZOLE MAGNESIUM
     Indication: Gastrooesophageal reflux disease
     Route: 048
     Dates: start: 2001, end: 2018
  2. NEXIUM [Suspect]
     Active Substance: ESOMEPRAZOLE MAGNESIUM
     Indication: Gastrooesophageal reflux disease
     Dosage: GENERIC
     Route: 065
     Dates: start: 2016
  3. NEXIUM [Suspect]
     Active Substance: ESOMEPRAZOLE MAGNESIUM
     Indication: Gastrooesophageal reflux disease
     Dosage: GENERIC
     Route: 065
     Dates: start: 2015, end: 2020
  4. PRILOSEC [Suspect]
     Active Substance: OMEPRAZOLE MAGNESIUM
     Indication: Gastrooesophageal reflux disease
     Route: 048
     Dates: start: 1990, end: 2000
  5. PRILOSEC [Suspect]
     Active Substance: OMEPRAZOLE MAGNESIUM
     Indication: Gastrooesophageal reflux disease
     Dosage: GENERIC
     Route: 065
     Dates: start: 2017
  6. PRILOSEC [Suspect]
     Active Substance: OMEPRAZOLE MAGNESIUM
     Indication: Gastrooesophageal reflux disease
     Route: 048
     Dates: start: 2013
  7. PRILOSEC OTC [Suspect]
     Active Substance: OMEPRAZOLE MAGNESIUM
     Indication: Gastrooesophageal reflux disease
     Route: 048
     Dates: start: 2017, end: 2018
  8. PREVACID [Suspect]
     Active Substance: LANSOPRAZOLE
     Indication: Gastrooesophageal reflux disease
     Route: 065
     Dates: start: 2000, end: 2002
  9. PROTONIX [Suspect]
     Active Substance: PANTOPRAZOLE SODIUM
     Indication: Gastrooesophageal reflux disease
     Route: 065
     Dates: start: 2000, end: 2018
  10. PROTONIX [Suspect]
     Active Substance: PANTOPRAZOLE SODIUM
     Indication: Gastrooesophageal reflux disease
     Route: 065
     Dates: start: 2000, end: 2018
  11. PROTONIX [Suspect]
     Active Substance: PANTOPRAZOLE SODIUM
     Indication: Gastrooesophageal reflux disease
     Route: 065
     Dates: start: 2013
  12. PROTONIX [Suspect]
     Active Substance: PANTOPRAZOLE SODIUM
     Indication: Gastrooesophageal reflux disease
     Route: 065
     Dates: start: 2013
  13. PROTONIX [Suspect]
     Active Substance: PANTOPRAZOLE SODIUM
     Indication: Gastrooesophageal reflux disease
     Dosage: GENERIC
     Route: 065
     Dates: start: 2017, end: 2020
  14. PROTONIX [Suspect]
     Active Substance: PANTOPRAZOLE SODIUM
     Indication: Gastrooesophageal reflux disease
     Dosage: GENERIC
     Route: 065
     Dates: start: 2017, end: 2020
  15. ISOSORBIDE MONONITRATE [Concomitant]
     Active Substance: ISOSORBIDE MONONITRATE
     Indication: Cardiac failure
     Route: 065
     Dates: start: 20130814, end: 20180602
  16. PREDNISONE [Concomitant]
     Active Substance: PREDNISONE
     Indication: Inflammation
     Route: 065
     Dates: start: 20080121, end: 20151021
  17. ALBUTEROL [Concomitant]
     Active Substance: ALBUTEROL
     Indication: Bronchospasm
     Route: 065
     Dates: start: 20171114, end: 20171204
  18. AMOXICILLIN [Concomitant]
     Active Substance: AMOXICILLIN
     Indication: Infection
     Route: 065
     Dates: start: 20140117, end: 20160822
  19. LISINOPRIL [Concomitant]
     Active Substance: LISINOPRIL
     Indication: Hypertension
     Route: 065
     Dates: start: 20160205
  20. IBUPROFEN [Concomitant]
     Active Substance: IBUPROFEN
     Indication: Headache
     Route: 065
     Dates: start: 199001, end: 20210406
  21. TYLENOL [Concomitant]
     Active Substance: ACETAMINOPHEN
     Indication: Pain
     Route: 065
     Dates: start: 199001, end: 20210406
  22. BENADRYL [Concomitant]
     Active Substance: DIPHENHYDRAMINE HYDROCHLORIDE
     Indication: Multiple allergies
     Route: 065
     Dates: start: 199001
  23. VITAMIN D [Concomitant]
     Active Substance: VITAMIN D NOS
     Indication: Bone disorder
     Dates: start: 199001, end: 20210406
  24. PEPCID [Concomitant]
     Active Substance: FAMOTIDINE
     Dates: start: 2004, end: 2006
  25. TUMS [Concomitant]
     Active Substance: CALCIUM CARBONATE
     Dates: start: 2002, end: 2004
  26. PEPTO-BISMOL [Concomitant]
     Active Substance: BISMUTH SUBSALICYLATE
     Dates: start: 2002, end: 2004
  27. ROLAIDS [Concomitant]
     Active Substance: CALCIUM CARBONATE\MAGNESIUM HYDROXIDE
     Dates: start: 2002, end: 2004
  28. MYLANTA [Concomitant]
     Active Substance: ALUMINUM HYDROXIDE\DIMETHICONE\MAGNESIUM HYDROXIDE
     Dates: start: 2002, end: 2004
  29. CALCITRIOL [Concomitant]
     Active Substance: CALCITRIOL
  30. DOCUSATE SODIUM [Concomitant]
     Active Substance: DOCUSATE SODIUM
  31. DULCOLAX NOS [Concomitant]
     Active Substance: BISACODYL OR DOCUSATE SODIUM
  32. EPOGEN [Concomitant]
     Active Substance: ERYTHROPOIETIN
  33. GENTAMICIN [Concomitant]
     Active Substance: GENTAMICIN
  34. LACTULOSE [Concomitant]
     Active Substance: LACTULOSE
  35. LANTUS [Concomitant]
     Active Substance: INSULIN GLARGINE
  36. NITROGLYCERIN [Concomitant]
     Active Substance: NITROGLYCERIN
  37. POTASSIUM CHLORIDE [Concomitant]
     Active Substance: POTASSIUM CHLORIDE
  38. CIPRODEX [Concomitant]
     Active Substance: CIPROFLOXACIN HYDROCHLORIDE\DEXAMETHASONE
  39. OXYCODONE [Concomitant]
     Active Substance: OXYCODONE
  40. LIDOCAINE [Concomitant]
     Active Substance: LIDOCAINE
  41. TRAMADOL [Concomitant]
     Active Substance: TRAMADOL
  42. CEPHALEXIN [Concomitant]
     Active Substance: CEPHALEXIN
  43. LEVOFLOXACIN [Concomitant]
     Active Substance: LEVOFLOXACIN
  44. CALCIUM ACETATE [Concomitant]
     Active Substance: CALCIUM ACETATE
  45. BENZONATATE [Concomitant]
     Active Substance: BENZONATATE
  46. FLUCONAZOLE [Concomitant]
     Active Substance: FLUCONAZOLE
  47. ESCITALOPRAM [Concomitant]
     Active Substance: ESCITALOPRAM OXALATE
  48. TRAZODONE [Concomitant]
     Active Substance: TRAZODONE HYDROCHLORIDE
  49. BISACODYL [Concomitant]
     Active Substance: BISACODYL
  50. AZITHROMYCIN [Concomitant]
     Active Substance: AZITHROMYCIN
  51. ONDANSETRON [Concomitant]
     Active Substance: ONDANSETRON
  52. NITROSTAT [Concomitant]
     Active Substance: NITROGLYCERIN
  53. DOXYCYCLINE [Concomitant]
     Active Substance: DOXYCYCLINE
  54. LOSARTAN [Concomitant]
     Active Substance: LOSARTAN
  55. SPIRIVA [Concomitant]
     Active Substance: TIOTROPIUM BROMIDE MONOHYDRATE
  56. BETAMETHASONE [Concomitant]
     Active Substance: BETAMETHASONE
  57. CYCLOBENZAPRINE [Concomitant]
     Active Substance: CYCLOBENZAPRINE
  58. SENNA [Concomitant]
     Active Substance: SENNA LEAF\SENNOSIDES\SENNOSIDES A AND B
  59. NYSTATIN [Concomitant]
     Active Substance: NYSTATIN
  60. MOMETASONE [Concomitant]
     Active Substance: MOMETASONE
  61. IPRATROPIUM [Concomitant]
     Active Substance: IPRATROPIUM
  62. CLOPIDOGREL [Concomitant]
     Active Substance: CLOPIDOGREL BISULFATE
  63. CLONIDINE [Concomitant]
     Active Substance: CLONIDINE
  64. ZOLPIDEM [Concomitant]
     Active Substance: ZOLPIDEM TARTRATE
  65. MYCOPHENOLIC ACID [Concomitant]
     Active Substance: MYCOPHENOLIC ACID
  66. SODIUM BICARBONATE [Concomitant]
     Active Substance: SODIUM BICARBONATE
  67. MIRALAX [Concomitant]
     Active Substance: POLYETHYLENE GLYCOL 3350
  68. PEPCID AC [Concomitant]
     Active Substance: FAMOTIDINE
     Dates: start: 2004, end: 2006

REACTIONS (9)
  - End stage renal disease [Fatal]
  - Shock haemorrhagic [Fatal]
  - Colorectal cancer metastatic [Fatal]
  - Respiratory failure [Fatal]
  - Acute kidney injury [Not Recovered/Not Resolved]
  - Chronic kidney disease [Not Recovered/Not Resolved]
  - Renal failure [Not Recovered/Not Resolved]
  - Nephrogenic anaemia [Unknown]
  - Hyperparathyroidism secondary [Unknown]

NARRATIVE: CASE EVENT DATE: 20020101
